FAERS Safety Report 6995841-0 (Version None)
Quarter: 2010Q3

REPORT INFORMATION
  Report Type: 
  Country: None (occurrence: None)
  Receive Date: 20100918
  Receipt Date: 20090112
  Transmission Date: 20110219
  Serious: No
  Sender: FDA-Public Use
  Company Number: US-WYE-H06871408

PATIENT
  Sex: Female

DRUGS (6)
  1. EFFEXOR XR [Suspect]
     Indication: ANXIETY
     Route: 048
     Dates: start: 20060101
  2. EFFEXOR XR [Suspect]
     Indication: DEPRESSION
  3. XANAX [Concomitant]
  4. ADDERALL 10 [Concomitant]
  5. ADVIL LIQUI-GELS [Concomitant]
  6. TYLENOL [Concomitant]

REACTIONS (4)
  - DRUG INTOLERANCE [None]
  - DRUG WITHDRAWAL SYNDROME [None]
  - LOSS OF CONSCIOUSNESS [None]
  - PARAESTHESIA [None]
